FAERS Safety Report 21356732 (Version 1)
Quarter: 2022Q3

REPORT INFORMATION
  Report Type: Spontaneous
  Country: US (occurrence: None)
  Receive Date: 20220920
  Receipt Date: 20220920
  Transmission Date: 20221027
  Serious: Yes (Other)
  Sender: FDA-Public Use
  Company Number: US-ROCHE-3181781

PATIENT
  Age: 63 Year
  Sex: Female
  Weight: 59.020 kg

DRUGS (3)
  1. RITUXAN [Suspect]
     Active Substance: RITUXIMAB
     Indication: Non-Hodgkin^s lymphoma
     Dosage: 1X/ WEEK FOR 4 WEEKS EVERY 6 MONTHS ;ONGOING: NO
     Route: 042
     Dates: start: 20191018, end: 20200514
  2. ESTRADIOL [Concomitant]
     Active Substance: ESTRADIOL
     Dosage: LAST DOSE: 14-SEP-2022 ;ONGOING: YES
     Route: 048
     Dates: start: 2002
  3. NEULASTA [Concomitant]
     Active Substance: PEGFILGRASTIM
     Dosage: TAKES MONTHLY FOR 3 MONTHS ;ONGOING: UNKNOWN
     Dates: start: 20220705

REACTIONS (4)
  - Progressive multifocal leukoencephalopathy [Recovered/Resolved with Sequelae]
  - JC polyomavirus test positive [Recovered/Resolved with Sequelae]
  - Paraesthesia [Unknown]
  - Balance disorder [Recovered/Resolved with Sequelae]

NARRATIVE: CASE EVENT DATE: 20200601
